FAERS Safety Report 4635167-3 (Version None)
Quarter: 2005Q2

REPORT INFORMATION
  Report Type: 
  Country: None (occurrence: None)
  Receive Date: 20050414
  Receipt Date: 20050406
  Transmission Date: 20051028
  Serious: Yes (Other)
  Sender: FDA-Public Use
  Company Number: GB-GLAXOSMITHKLINE-B0377083A

PATIENT
  Age: 54 Year
  Sex: Female
  Weight: 94 kg

DRUGS (5)
  1. AVANDIA [Suspect]
     Indication: DIABETES MELLITUS
     Dosage: 4MG UNKNOWN
     Route: 048
     Dates: start: 20050311, end: 20050324
  2. METFORMIN HCL [Concomitant]
     Dosage: 3G PER DAY
     Route: 065
  3. GLIMEPIRIDE [Concomitant]
     Dosage: 4MG PER DAY
     Route: 065
  4. IRBESARTAN [Concomitant]
     Dosage: 75MG PER DAY
     Route: 065
  5. SIMVASTATIN [Concomitant]
     Dosage: 20MG PER DAY
     Route: 065

REACTIONS (3)
  - JOINT SWELLING [None]
  - PARAESTHESIA [None]
  - RECTAL HAEMORRHAGE [None]
